FAERS Safety Report 9345041 (Version 1)
Quarter: 2013Q2

REPORT INFORMATION
  Report Type: Spontaneous
  Country: US (occurrence: US)
  Receive Date: 20130612
  Receipt Date: 20130612
  Transmission Date: 20140414
  Serious: Yes (Death, Hospitalization, Other)
  Sender: FDA-Public Use
  Company Number: US-BAYER-2013-069980

PATIENT
  Age: 97 Year
  Sex: Female
  Weight: 44 kg

DRUGS (7)
  1. PHILLIPS^ MILK OF MAGNESIA [Suspect]
     Dosage: TOOK ENTIRE BOTTLE
     Route: 048
  2. VITAMIN B12 [Concomitant]
  3. LASIX [Concomitant]
  4. VICODIN [Concomitant]
  5. SYNTHROID [Concomitant]
  6. ALTACE [Concomitant]
  7. ATIVAN [Concomitant]
     Dosage: UNK UNK, PRN

REACTIONS (7)
  - Mental status changes [None]
  - Overdose [None]
  - Blood magnesium increased [None]
  - Blood potassium increased [None]
  - Alanine aminotransferase increased [None]
  - Aspartate aminotransferase increased [None]
  - Death [Fatal]
